FAERS Safety Report 5059981-8 (Version None)
Quarter: 2006Q2

REPORT INFORMATION
  Report Type: 
  Country: None (occurrence: None)
  Receive Date: 20060630
  Receipt Date: 20060515
  Transmission Date: 20061013
  Serious: Yes (Hospitalization)
  Sender: FDA-Public Use
  Company Number: A03200603062

PATIENT
  Age: 31 Year
  Sex: Female
  Weight: 84.8226 kg

DRUGS (5)
  1. AMBIEN [Suspect]
     Indication: INSOMNIA
     Dosage: 12.5 MG HS - ORAL
     Route: 048
     Dates: start: 20060401, end: 20060509
  2. SETRALINE HCL [Concomitant]
  3. TEGASEROD [Concomitant]
  4. ACETAMINOPHEN [Concomitant]
  5. WARFARIN SODIUM [Concomitant]

REACTIONS (8)
  - ABNORMAL BEHAVIOUR [None]
  - AMNESIA [None]
  - DEPRESSION [None]
  - EATING DISORDER [None]
  - PHARYNGOLARYNGEAL PAIN [None]
  - SLEEP WALKING [None]
  - SUICIDE ATTEMPT [None]
  - WEIGHT INCREASED [None]
